FAERS Safety Report 11985610 (Version 5)
Quarter: 2017Q1

REPORT INFORMATION
  Report Type: Report from Study
  Country: US (occurrence: US)
  Receive Date: 20160201
  Receipt Date: 20170221
  Transmission Date: 20170428
  Serious: Yes (Death, Hospitalization)
  Sender: FDA-Public Use
  Company Number: US-BIOGEN-2016BI00179351

PATIENT
  Age: 64 Year
  Sex: Female

DRUGS (4)
  1. TECFIDERA [Suspect]
     Active Substance: DIMETHYL FUMARATE
     Indication: MULTIPLE SCLEROSIS
     Dosage: STARTING DOSE
     Route: 048
     Dates: start: 20130513, end: 20130520
  2. TECFIDERA [Suspect]
     Active Substance: DIMETHYL FUMARATE
     Dosage: STARTING DOSE
     Route: 048
     Dates: start: 201306
  3. TECFIDERA [Suspect]
     Active Substance: DIMETHYL FUMARATE
     Dosage: MAINTENANCE
     Route: 048
     Dates: start: 201306, end: 201506
  4. TECFIDERA [Suspect]
     Active Substance: DIMETHYL FUMARATE
     Dosage: MAINTENANCE DOSE
     Route: 048
     Dates: start: 20130521, end: 20160130

REACTIONS (13)
  - Drug ineffective [Recovered/Resolved]
  - Ill-defined disorder [Fatal]
  - Urinary tract infection [Recovered/Resolved]
  - Intensive care unit acquired weakness [Unknown]
  - Gastric disorder [Unknown]
  - Multiple sclerosis [Unknown]
  - Muscular weakness [Unknown]
  - Clostridial sepsis [Unknown]
  - Gastrointestinal disorder [Unknown]
  - Osteomyelitis [Fatal]
  - Decubitus ulcer [Unknown]
  - Urosepsis [Unknown]
  - Pneumonia aspiration [Fatal]

NARRATIVE: CASE EVENT DATE: 201410
